FAERS Safety Report 4674583-0 (Version None)
Quarter: 2005Q2

REPORT INFORMATION
  Report Type: 
  Country: None (occurrence: None)
  Receive Date: 20050525
  Receipt Date: 20050523
  Transmission Date: 20051028
  Serious: Yes (Other)
  Sender: FDA-Public Use
  Company Number: 05-05-0926

PATIENT
  Age: 57 Year
  Sex: Male

DRUGS (2)
  1. CLOZAPINE [Suspect]
     Indication: SCHIZOPHRENIA, PARANOID TYPE
     Dosage: 25MG QD ORAL
     Route: 048
     Dates: start: 19980801, end: 20050520
  2. CHEMOTHERAPY [Suspect]
     Indication: LUNG NEOPLASM MALIGNANT

REACTIONS (2)
  - AGRANULOCYTOSIS [None]
  - NON-SMALL CELL LUNG CANCER STAGE I [None]
